FAERS Safety Report 9114767 (Version 1)
Quarter: 2013Q1

REPORT INFORMATION
  Report Type: Report from Study
  Country: US (occurrence: US)
  Receive Date: 20130128
  Receipt Date: 20130128
  Transmission Date: 20140127
  Serious: Yes (Hospitalization, Other)
  Sender: FDA-Public Use
  Company Number: US-ACTELION-A-US2013-77975

PATIENT
  Age: 74 Year
  Sex: Female

DRUGS (4)
  1. VELETRI [Suspect]
     Indication: PULMONARY ARTERIAL HYPERTENSION
     Dosage: 21 NG/KG, PER MIN
     Route: 042
     Dates: start: 20120712
  2. ADCIRCA [Concomitant]
  3. LETAIRIS [Concomitant]
     Dosage: 5 MG, OD
     Dates: start: 20120329
  4. WARFARIN [Concomitant]

REACTIONS (3)
  - Blood potassium decreased [Unknown]
  - Local swelling [Unknown]
  - Fluid retention [Recovering/Resolving]
